FAERS Safety Report 19958749 (Version 1)
Quarter: 2021Q4

REPORT INFORMATION
  Report Type: Spontaneous
  Country: US (occurrence: US)
  Receive Date: 20211012
  Receipt Date: 20211012
  Transmission Date: 20220304
  Serious: No
  Sender: FDA-Public Use
  Company Number: None

PATIENT
  Age: 37 Year
  Sex: Female

DRUGS (2)
  1. AMBRISENTAN [Suspect]
     Active Substance: AMBRISENTAN
     Route: 048
     Dates: start: 20190711
  2. ADCIRCA [Suspect]
     Active Substance: TADALAFIL
     Dates: start: 20190626

REACTIONS (3)
  - Dyspnoea [None]
  - Duplicate therapy error [None]
  - Product administration error [None]

NARRATIVE: CASE EVENT DATE: 20210908
